FAERS Safety Report 7038688-1 (Version None)
Quarter: 2010Q4

REPORT INFORMATION
  Report Type: 
  Country: None (occurrence: None)
  Receive Date: 20101011
  Receipt Date: 20101001
  Transmission Date: 20110411
  Serious: Yes (Hospitalization)
  Sender: FDA-Public Use
  Company Number: FR-PFIZER INC-2010125994

PATIENT
  Sex: Male

DRUGS (9)
  1. ATARAX [Suspect]
     Indication: BIPOLAR I DISORDER
     Dosage: 75 MG, DAILY
     Route: 048
     Dates: start: 20100722, end: 20100802
  2. TERALHITE [Suspect]
     Indication: BIPOLAR I DISORDER
     Dosage: 800 MG, DAILY
     Route: 048
  3. ANAFRANIL [Suspect]
     Indication: BIPOLAR I DISORDER
     Dosage: 75 MG, DAILY
     Route: 048
     Dates: end: 20100301
  4. ANAFRANIL [Suspect]
     Dosage: 150 MG, DAILY
     Route: 048
     Dates: start: 20100301, end: 20100721
  5. ANAFRANIL [Suspect]
     Dosage: 225 MG, DAILY
     Route: 048
     Dates: start: 20100722
  6. VALDOXAN [Suspect]
     Indication: DEPRESSION
     Dosage: 50 MG, DAILY
     Route: 048
     Dates: start: 20100722, end: 20100802
  7. AMLODIPINE [Concomitant]
     Indication: HYPERTENSION
     Dosage: 5 MG, 1X/DAY
     Route: 048
  8. PROPRANOLOL [Concomitant]
     Indication: HYPERTENSION
     Dosage: 20 MG, UNK
  9. XANAX [Concomitant]
     Indication: BIPOLAR I DISORDER
     Dosage: 0.5 MG, UNK
     Dates: end: 20100721

REACTIONS (4)
  - CONFUSIONAL STATE [None]
  - DYSARTHRIA [None]
  - TREMOR [None]
  - URINARY RETENTION [None]
